APPROVED DRUG PRODUCT: PREDNISONE
Active Ingredient: PREDNISONE
Strength: 20MG
Dosage Form/Route: TABLET;ORAL
Application: A080352 | Product #005 | TE Code: AB
Applicant: HIKMA PHARMACEUTICALS USA INC
Approved: Approved Prior to Jan 1, 1982 | RLD: Yes | RS: Yes | Type: RX